FAERS Safety Report 23082954 (Version 1)
Quarter: 2023Q4

REPORT INFORMATION
  Report Type: Report from Study
  Country: AR (occurrence: AR)
  Receive Date: 20231019
  Receipt Date: 20231019
  Transmission Date: 20240110
  Serious: Yes (Other)
  Sender: FDA-Public Use
  Company Number: AR-002147023-NVSC2023AR223019

PATIENT
  Sex: Female

DRUGS (2)
  1. COSENTYX [Suspect]
     Active Substance: SECUKINUMAB
     Indication: Psoriasis
     Dosage: 300 MG, QMO
     Route: 065
     Dates: start: 201804
  2. COSENTYX [Suspect]
     Active Substance: SECUKINUMAB
     Indication: Psoriatic arthropathy

REACTIONS (10)
  - Lymphoma [Unknown]
  - Salivary gland neoplasm [Unknown]
  - Pain [Unknown]
  - Thyroid neoplasm [Unknown]
  - Pain in extremity [Unknown]
  - Hypoaesthesia [Unknown]
  - Generalised oedema [Unknown]
  - Feeling hot [Unknown]
  - Pyrexia [Unknown]
  - Joint swelling [Unknown]
